FAERS Safety Report 20743819 (Version 3)
Quarter: 2022Q4

REPORT INFORMATION
  Report Type: Spontaneous
  Country: JP (occurrence: JP)
  Receive Date: 20220425
  Receipt Date: 20221102
  Transmission Date: 20230113
  Serious: Yes (Hospitalization, Other)
  Sender: FDA-Public Use
  Company Number: JP-BRISTOL-MYERS SQUIBB COMPANY-2022-025670

PATIENT
  Age: 63 Year
  Sex: Male
  Weight: 43.4 kg

DRUGS (8)
  1. YERVOY [Suspect]
     Active Substance: IPILIMUMAB
     Indication: Lung adenocarcinoma
     Route: 041
     Dates: start: 20211116, end: 20211116
  2. YERVOY [Suspect]
     Active Substance: IPILIMUMAB
     Route: 041
  3. YERVOY [Suspect]
     Active Substance: IPILIMUMAB
     Route: 041
     Dates: start: 20220208, end: 20220208
  4. OPDIVO [Suspect]
     Active Substance: NIVOLUMAB
     Indication: Lung adenocarcinoma
     Route: 041
     Dates: start: 20211116, end: 20211116
  5. OPDIVO [Suspect]
     Active Substance: NIVOLUMAB
     Route: 041
  6. OPDIVO [Suspect]
     Active Substance: NIVOLUMAB
     Route: 041
  7. OPDIVO [Suspect]
     Active Substance: NIVOLUMAB
     Route: 041
  8. OPDIVO [Suspect]
     Active Substance: NIVOLUMAB
     Route: 041
     Dates: start: 20220208, end: 20220208

REACTIONS (2)
  - Adrenal insufficiency [Recovering/Resolving]
  - Adrenocorticotropic hormone deficiency [Recovering/Resolving]

NARRATIVE: CASE EVENT DATE: 20220301
